FAERS Safety Report 4886295-9 (Version None)
Quarter: 2006Q1

REPORT INFORMATION
  Report Type: 
  Country: None (occurrence: None)
  Receive Date: 20060120
  Receipt Date: 20050609
  Transmission Date: 20060701
  Serious: Yes (Hospitalization)
  Sender: FDA-Public Use
  Company Number: US-MERCK-0506USA01568

PATIENT
  Age: 60 Year
  Sex: Female

DRUGS (1)
  1. VIOXX [Suspect]
     Route: 048
     Dates: start: 20001114

REACTIONS (10)
  - ANEURYSM [None]
  - ARTERIOSCLEROSIS [None]
  - CHEST PAIN [None]
  - DIZZINESS [None]
  - FALL [None]
  - INFARCTION [None]
  - JOINT SPRAIN [None]
  - MENTAL STATUS CHANGES [None]
  - MITRAL VALVE PROLAPSE [None]
  - URINARY TRACT INFECTION [None]
